FAERS Safety Report 10706920 (Version 3)
Quarter: 2015Q1

REPORT INFORMATION
  Report Type: Spontaneous
  Country: FR (occurrence: FR)
  Receive Date: 20150113
  Receipt Date: 20150331
  Transmission Date: 20150721
  Serious: Yes (Death, Hospitalization, Other)
  Sender: FDA-Public Use
  Company Number: PHHY2015FR002720

PATIENT
  Age: 21 Year
  Sex: Male
  Weight: 118 kg

DRUGS (18)
  1. TERCIAN [Concomitant]
     Active Substance: CYAMEMAZINE
     Dosage: 150 MG, (50 IN THE MORNING AND 100 MG IN THE NIGHT)
     Route: 065
  2. SERESTA [Concomitant]
     Active Substance: OXAZEPAM
     Indication: PSYCHOTIC DISORDER
     Dosage: 1 DF, TID
     Route: 065
  3. OXYCONTIN [Suspect]
     Active Substance: OXYCODONE HYDROCHLORIDE
     Dosage: 40 MG, BID
     Route: 065
     Dates: start: 20101215
  4. LYRICA [Concomitant]
     Active Substance: PREGABALIN
     Indication: EPILEPSY
     Dosage: 1 TABLET IN THE MORNING AND 2 IN THE EVENING
     Route: 065
  5. LYRICA [Concomitant]
     Active Substance: PREGABALIN
     Dosage: 150 MG, TID
     Route: 065
     Dates: start: 20100916
  6. DOLIPRANE [Concomitant]
     Active Substance: ACETAMINOPHEN
     Indication: PRODUCT USED FOR UNKNOWN INDICATION
     Dosage: 4 TIMES A DAY
     Route: 065
  7. TERCIAN [Concomitant]
     Active Substance: CYAMEMAZINE
     Indication: PRODUCT USED FOR UNKNOWN INDICATION
     Dosage: 50 MG, BID
     Route: 065
  8. DAFALGAN [Concomitant]
     Active Substance: ACETAMINOPHEN
     Indication: PAIN
     Dosage: UNK
     Route: 065
  9. LYRICA [Concomitant]
     Active Substance: PREGABALIN
     Indication: PAIN
     Dosage: 200 MG, BID
     Route: 065
  10. ATARAX [Concomitant]
     Active Substance: HYDROXYZINE\HYDROXYZINE HYDROCHLORIDE
     Indication: ANXIETY
     Dosage: 100 MG, UNK
     Route: 065
  11. LYRICA [Concomitant]
     Active Substance: PREGABALIN
     Dosage: AT 1 CAPSULE IN THE MORNING AND 2 CAPSULES IN THE EVENING
     Route: 065
     Dates: start: 20101215
  12. ATARAX [Concomitant]
     Active Substance: HYDROXYZINE\HYDROXYZINE HYDROCHLORIDE
     Dosage: 2 TABLETS MORNING AND EVENING PLUS 2 TABLETS IF REQUIRED
     Route: 065
     Dates: start: 20100512
  13. OXYCONTIN [Suspect]
     Active Substance: OXYCODONE HYDROCHLORIDE
     Indication: PAIN
     Dosage: 40 MG, BID
     Route: 065
     Dates: start: 20100830
  14. LEPONEX [Suspect]
     Active Substance: CLOZAPINE
     Indication: PRODUCT USED FOR UNKNOWN INDICATION
     Dosage: 25 MG, BID
     Route: 065
     Dates: start: 20110301
  15. CLOZAPINE. [Suspect]
     Active Substance: CLOZAPINE
     Indication: PRODUCT USED FOR UNKNOWN INDICATION
     Dosage: 25 MG, BID
     Route: 065
  16. NOZINAN [Concomitant]
     Active Substance: LEVOMEPROMAZINE
     Indication: PRODUCT USED FOR UNKNOWN INDICATION
     Dosage: ONE TABLET AT BEDTIME
     Route: 065
  17. LEPONEX [Suspect]
     Active Substance: CLOZAPINE
     Dosage: 100 MG, QD
     Route: 065
     Dates: start: 20110303
  18. CLAMOXYL [Concomitant]
     Active Substance: AMOXICILLIN\CLAVULANIC ACID
     Indication: PHARYNGITIS
     Dosage: UNK
     Route: 065
     Dates: start: 20110216, end: 20110216

REACTIONS (24)
  - Arrhythmia [Fatal]
  - Mendelson^s syndrome [Fatal]
  - Brain oedema [Fatal]
  - Nocturia [Unknown]
  - Somnolence [Unknown]
  - Cardio-respiratory arrest [Fatal]
  - Hypertrophic cardiomyopathy [Fatal]
  - Tachycardia [Unknown]
  - Respiratory depression [Fatal]
  - Bronchial disorder [Fatal]
  - Hallucinations, mixed [Unknown]
  - Psychotic disorder [Unknown]
  - Suicide attempt [Unknown]
  - Loss of consciousness [Unknown]
  - Snoring [Unknown]
  - Drug ineffective [Unknown]
  - Cardiomyopathy [Fatal]
  - Erythema [Unknown]
  - Overdose [Fatal]
  - Sleep apnoea syndrome [Unknown]
  - Choking [Fatal]
  - Coma [Fatal]
  - Hypoxia [Fatal]
  - Anxiety [Unknown]

NARRATIVE: CASE EVENT DATE: 20110303
